FAERS Safety Report 5511613-8 (Version None)
Quarter: 2007Q4

REPORT INFORMATION
  Report Type: 
  Country: None (occurrence: None)
  Receive Date: 20071109
  Receipt Date: 20071028
  Transmission Date: 20080405
  Serious: Yes (Death)
  Sender: FDA-Public Use
  Company Number: CA-NOVOPROD-269183

PATIENT
  Age: 83 Year
  Sex: Female

DRUGS (2)
  1. NIASTASE [Suspect]
     Indication: HAEMORRHAGE
     Dosage: 90 UG / KG TOTAL: 4.8 MG
     Dates: start: 20040317
  2. NIASTASE [Suspect]

REACTIONS (2)
  - RENAL FAILURE [None]
  - RESPIRATORY TRACT INFECTION [None]
